FAERS Safety Report 8855366 (Version 1)
Quarter: 2012Q4

REPORT INFORMATION
  Report Type: 
  Country: US (occurrence: US)
  Receive Date: 20121023
  Receipt Date: 20121023
  Transmission Date: 20130627
  Serious: No
  Sender: FDA-Public Use
  Company Number: US-AMGEN-USASP2012050969

PATIENT
  Sex: Male

DRUGS (5)
  1. ENBREL [Suspect]
     Indication: PRODUCT USED FOR UNKNOWN INDICATION
     Dosage: 50 mg, qwk
     Dates: end: 20120921
  2. CELEBREX [Concomitant]
     Dosage: 50 mg, UNK
  3. PREDNISON [Concomitant]
     Dosage: 1 mg, UNK
  4. ARAVA [Concomitant]
     Dosage: 10 mg, UNK
  5. LEFLUNOMIDE [Concomitant]
     Dosage: 10 mg, UNK

REACTIONS (1)
  - Pain [Unknown]
